FAERS Safety Report 12662677 (Version 3)
Quarter: 2019Q1

REPORT INFORMATION
  Report Type: Report from Study
  Country: US (occurrence: US)
  Receive Date: 20160818
  Receipt Date: 20190131
  Transmission Date: 20190417
  Serious: Yes (Life-Threatening, Hospitalization, Other)
  Sender: FDA-Public Use
  Company Number: US-ROCHE-1813440

PATIENT

DRUGS (1)
  1. ALTEPLASE. [Suspect]
     Active Substance: ALTEPLASE
     Indication: CEREBRAL HAEMORRHAGE
     Route: 065

REACTIONS (5)
  - Pulmonary embolism [Recovered/Resolved]
  - Acute respiratory distress syndrome [Recovered/Resolved]
  - Cerebral ischaemia [Unknown]
  - Pneumonia [Recovered/Resolved]
  - Deep vein thrombosis [Recovered/Resolved]

NARRATIVE: CASE EVENT DATE: 20160601
